FAERS Safety Report 6010552-6 (Version None)
Quarter: 2008Q4

REPORT INFORMATION
  Report Type: 
  Country: None (occurrence: None)
  Receive Date: 20081217
  Receipt Date: 20081217
  Transmission Date: 20090506
  Serious: Yes (Other)
  Sender: FDA-Public Use
  Company Number: None

PATIENT
  Sex: Female
  Weight: 63.9572 kg

DRUGS (3)
  1. ISOSORBIDE MONONITRATE [Suspect]
     Indication: ASTHMA
     Dosage: FIRST ONE TAB - CHGD TO 1/2 1/2 TAB TAKEN - DAILY OF THIS PARTICULAR BOTTLE OF RX
     Dates: start: 20080915, end: 20081001
  2. ISOSORBIDE MONONITRATE [Suspect]
     Indication: HYPERTENSION
     Dosage: FIRST ONE TAB - CHGD TO 1/2 1/2 TAB TAKEN - DAILY OF THIS PARTICULAR BOTTLE OF RX
     Dates: start: 20080915, end: 20081001
  3. ISOSORBIDE MONONITRATE [Suspect]
     Indication: TRANSIENT ISCHAEMIC ATTACK
     Dosage: FIRST ONE TAB - CHGD TO 1/2 1/2 TAB TAKEN - DAILY OF THIS PARTICULAR BOTTLE OF RX
     Dates: start: 20080915, end: 20081001

REACTIONS (9)
  - ASTHENIA [None]
  - BALANCE DISORDER [None]
  - DRUG DISPENSING ERROR [None]
  - EAR PAIN [None]
  - HEADACHE [None]
  - ILL-DEFINED DISORDER [None]
  - INCORRECT DOSE ADMINISTERED [None]
  - NAUSEA [None]
  - PRODUCT QUALITY ISSUE [None]
